FAERS Safety Report 24285902 (Version 1)
Quarter: 2024Q3

REPORT INFORMATION
  Report Type: Spontaneous
  Country: DE (occurrence: DE)
  Receive Date: 20240905
  Receipt Date: 20240905
  Transmission Date: 20241017
  Serious: Yes (Life-Threatening, Disabling, Congenital Anomaly, Other)
  Sender: TORRENT
  Company Number: None

PATIENT

DRUGS (5)
  1. CITALOPRAM [Suspect]
     Active Substance: CITALOPRAM\CITALOPRAM HYDROBROMIDE
     Indication: Product used for unknown indication
     Dosage: MOTHER^S DOSE: 20MG/D FROM 16-MAY-2023 TO 14-SEP-2023 FOR 121 DAYS, SINCE 12 YEARS
     Route: 064
  2. LEVETIRACETAM [Suspect]
     Active Substance: LEVETIRACETAM
     Indication: Product used for unknown indication
     Dosage: MOTHER^S DOSE: 2000 [MG/D] FROM 16-MAY-2023 TO 14-SEP-2023 FOR 121 DAYS
     Route: 064
  3. HEPARIN [Concomitant]
     Active Substance: HEPARIN SODIUM
     Indication: Product used for unknown indication
     Dosage: NO DETAILS KNOWN
     Route: 064
  4. MIFEPRISTONE [Concomitant]
     Active Substance: MIFEPRISTONE
     Indication: Product used for unknown indication
     Dosage: MOTHER^S DOSE: 600 [MG/D] ON 12-SEP-2023
     Route: 064
  5. MISOPROSTOL [Concomitant]
     Active Substance: MISOPROSTOL
     Indication: Product used for unknown indication
     Dosage: MOTHER^S DRUG START DATE: 14-SEP-2023
     Route: 064

REACTIONS (5)
  - Spina bifida [Not Recovered/Not Resolved]
  - Arnold-Chiari malformation [Not Recovered/Not Resolved]
  - Meningomyelocele [Not Recovered/Not Resolved]
  - Foot deformity [Not Recovered/Not Resolved]
  - Foetal exposure during pregnancy [Unknown]
